FAERS Safety Report 5082345-8 (Version None)
Quarter: 2006Q3

REPORT INFORMATION
  Report Type: 
  Country: None (occurrence: None)
  Receive Date: 20060817
  Receipt Date: 20060811
  Transmission Date: 20061208
  Serious: Yes (Hospitalization)
  Sender: FDA-Public Use
  Company Number: US-AVENTIS-200616702US

PATIENT
  Age: 48 Year
  Sex: Female

DRUGS (7)
  1. LOVENOX [Suspect]
     Indication: ANTIPHOSPHOLIPID SYNDROME
     Dates: start: 20060727
  2. LOVENOX [Suspect]
     Dates: start: 20060728
  3. LOVENOX [Suspect]
     Dosage: DOSE: UNK
  4. COUMADIN [Concomitant]
     Route: 048
  5. COUMADIN [Concomitant]
  6. METOPROLOL TARTRATE [Concomitant]
     Dosage: DOSE: UNK
  7. VALTREX [Concomitant]
     Dosage: DOSE: UNK

REACTIONS (4)
  - CARDIAC ENZYMES INCREASED [None]
  - CHEST PAIN [None]
  - INTRACARDIAC THROMBUS [None]
  - VISUAL DISTURBANCE [None]
